FAERS Safety Report 23242422 (Version 1)
Quarter: 2023Q4

REPORT INFORMATION
  Report Type: Report from Study
  Country: IT (occurrence: IT)
  Receive Date: 20231129
  Receipt Date: 20231129
  Transmission Date: 20240109
  Serious: Yes (Other)
  Sender: FDA-Public Use
  Company Number: IT-MYLANLABS-2023M1126252

PATIENT

DRUGS (3)
  1. TERBINAFINE [Suspect]
     Active Substance: TERBINAFINE
     Indication: Tinea cruris
     Dosage: 250 MILLIGRAM, QD, RECEIVED FOR 4 WEEKS
     Route: 048
  2. TERBINAFINE [Suspect]
     Active Substance: TERBINAFINE
     Indication: Body tinea
  3. TERBINAFINE [Suspect]
     Active Substance: TERBINAFINE
     Indication: Trichophytosis

REACTIONS (1)
  - Drug ineffective [Unknown]
